FAERS Safety Report 10246778 (Version 1)
Quarter: 2014Q2

REPORT INFORMATION
  Report Type: Spontaneous
  Country: US (occurrence: None)
  Receive Date: 20140617
  Receipt Date: 20140617
  Transmission Date: 20141212
  Serious: Yes (Hospitalization)
  Sender: FDA-Public Use
  Company Number: IPC201406-000296

PATIENT
  Age: 53 Year
  Sex: Female

DRUGS (9)
  1. FUROSEMIDE (FUROSEMIDE) (FUROSEMIDE) [Suspect]
  2. LISINOPRIL [Suspect]
  3. SPIRONOLACTONE (SPIRONOLACTONE) (SPIRONOLACTONE) [Suspect]
  4. INSULIN [Suspect]
     Dosage: 70/30, 40 UNITS AM, 25 UNITS PM
  5. POTASSIUM CHLORIDE (POTASSIUM CHLORIDE) (POTASSIUM CHLORIDE) [Suspect]
  6. SIMVASTATIN (SIMVASTATIN) (SIMVASTATIN) [Suspect]
  7. DIGOXIN (DIGOXIN) (DIGOXIN) [Suspect]
  8. CARVEDILOL (CARVEDILOL) (CARVEDILOL) [Suspect]
  9. FERROUS SULFATE [Suspect]

REACTIONS (4)
  - Fall [None]
  - Atrioventricular block first degree [None]
  - Paralysis flaccid [None]
  - Renal failure acute [None]
